FAERS Safety Report 9560535 (Version 4)
Quarter: 2015Q2

REPORT INFORMATION
  Report Type: Spontaneous
  Country: US (occurrence: US)
  Receive Date: 20130927
  Receipt Date: 20150410
  Transmission Date: 20150821
  Serious: No
  Sender: FDA-Public Use
  Company Number: US-BIOGENIDEC-2013BI052002

PATIENT
  Age: 36 Year
  Sex: Female

DRUGS (38)
  1. DICLOFENAC [Concomitant]
     Active Substance: DICLOFENAC
  2. NEURONTIN [Concomitant]
     Active Substance: GABAPENTIN
  3. FLAXSEED [Concomitant]
     Active Substance: FLAX SEED
  4. PERCOCET [Concomitant]
     Active Substance: ACETAMINOPHEN\OXYCODONE HYDROCHLORIDE
  5. SYNTHROID [Concomitant]
     Active Substance: LEVOTHYROXINE SODIUM
  6. VITAMIN B [Concomitant]
     Active Substance: VITAMIN B
  7. BACLOFEN. [Concomitant]
     Active Substance: BACLOFEN
  8. LACTULOSE. [Concomitant]
     Active Substance: LACTULOSE
  9. MS CONTIN [Concomitant]
     Active Substance: MORPHINE SULFATE
  10. TECFIDERA [Suspect]
     Active Substance: DIMETHYL FUMARATE
     Indication: MULTIPLE SCLEROSIS
     Dates: start: 20130530
  11. FEXOFENADINE [Concomitant]
     Active Substance: FEXOFENADINE\FEXOFENADINE HYDROCHLORIDE
  12. COPAXONE [Concomitant]
     Active Substance: GLATIRAMER ACETATE
  13. SINGULAIR [Concomitant]
     Active Substance: MONTELUKAST SODIUM
  14. MIRENA [Concomitant]
     Active Substance: LEVONORGESTREL
  15. VALIUM [Concomitant]
     Active Substance: DIAZEPAM
  16. FLONASE [Concomitant]
     Active Substance: FLUTICASONE PROPIONATE
  17. DIAZEPAM. [Concomitant]
     Active Substance: DIAZEPAM
  18. TECFIDERA [Suspect]
     Active Substance: DIMETHYL FUMARATE
     Indication: MULTIPLE SCLEROSIS
     Route: 048
     Dates: start: 20130518, end: 20130524
  19. CALCIUM [Concomitant]
     Active Substance: CALCIUM
  20. BIOTIN [Concomitant]
     Active Substance: BIOTIN
  21. ZOLOFT [Concomitant]
     Active Substance: SERTRALINE HYDROCHLORIDE
  22. ASPIRIN. [Concomitant]
     Active Substance: ASPIRIN
     Indication: PROPHYLAXIS
     Route: 048
     Dates: start: 20130530
  23. SOLU-MEDROL [Concomitant]
     Active Substance: METHYLPREDNISOLONE SODIUM SUCCINATE
  24. LIDODERM [Concomitant]
     Active Substance: LIDOCAINE
  25. ALEVE [Concomitant]
     Active Substance: NAPROXEN SODIUM
  26. ACETAMINOPHEN. [Concomitant]
     Active Substance: ACETAMINOPHEN
  27. OXYCODONE [Concomitant]
     Active Substance: OXYCODONE
  28. TECFIDERA [Suspect]
     Active Substance: DIMETHYL FUMARATE
     Indication: MULTIPLE SCLEROSIS
     Route: 048
  29. TECFIDERA [Suspect]
     Active Substance: DIMETHYL FUMARATE
     Indication: MULTIPLE SCLEROSIS
     Route: 048
     Dates: start: 20140121
  30. PEPCID [Concomitant]
     Active Substance: FAMOTIDINE
  31. PREDNISONE. [Concomitant]
     Active Substance: PREDNISONE
  32. CYANCOBALAMIN [Concomitant]
  33. IBUPROFEN. [Concomitant]
     Active Substance: IBUPROFEN
  34. TECFIDERA [Suspect]
     Active Substance: DIMETHYL FUMARATE
     Indication: MULTIPLE SCLEROSIS
     Route: 048
     Dates: start: 20130525, end: 20140114
  35. WELLBUTRIN [Concomitant]
     Active Substance: BUPROPION HYDROCHLORIDE
  36. BENADRYL [Concomitant]
     Active Substance: DIPHENHYDRAMINE HYDROCHLORIDE
  37. VITAMIN D [Concomitant]
     Active Substance: CHOLECALCIFEROL
  38. ADDERALL [Concomitant]
     Active Substance: AMPHETAMINE ASPARTATE\AMPHETAMINE SULFATE\DEXTROAMPHETAMINE SACCHARATE\DEXTROAMPHETAMINE SULFATE

REACTIONS (14)
  - Haematochezia [Not Recovered/Not Resolved]
  - Diarrhoea [Not Recovered/Not Resolved]
  - Erythema [Recovered/Resolved]
  - Pruritus [Recovered/Resolved]
  - Flushing [Unknown]
  - Arthralgia [Recovered/Resolved]
  - Skin burning sensation [Recovered/Resolved]
  - Pharyngeal oedema [Unknown]
  - Urticaria [Unknown]
  - Alopecia [Not Recovered/Not Resolved]
  - Abdominal pain upper [Not Recovered/Not Resolved]
  - Vomiting [Not Recovered/Not Resolved]
  - Abdominal distension [Not Recovered/Not Resolved]
  - Burning sensation [Unknown]

NARRATIVE: CASE EVENT DATE: 2013
